FAERS Safety Report 25179775 (Version 1)
Quarter: 2025Q2

REPORT INFORMATION
  Report Type: Spontaneous
  Country: FR (occurrence: FR)
  Receive Date: 20250409
  Receipt Date: 20250409
  Transmission Date: 20250716
  Serious: Yes (Other)
  Sender: VERTEX
  Company Number: None

PATIENT
  Age: 33 Year
  Sex: Male
  Weight: 66 kg

DRUGS (2)
  1. ELEXACAFTOR\IVACAFTOR\TEZACAFTOR [Suspect]
     Active Substance: ELEXACAFTOR\IVACAFTOR\TEZACAFTOR
     Indication: Cystic fibrosis
     Dosage: 75MG IVACAFTOR/50MG TEZACAFTOR/100MG ELEXACAFTOR 2 TABLETS IN THE MORNING
     Route: 048
     Dates: start: 202009
  2. KALYDECO [Suspect]
     Active Substance: IVACAFTOR
     Indication: Cystic fibrosis
     Dosage: 150MG IVACAFTOR ONE TABLET IN THE EVENING
     Route: 048
     Dates: start: 202009

REACTIONS (2)
  - Rosacea [Not Recovered/Not Resolved]
  - Ocular rosacea [Not Recovered/Not Resolved]

NARRATIVE: CASE EVENT DATE: 20240101
